FAERS Safety Report 9454316 (Version 1)
Quarter: 2013Q3

REPORT INFORMATION
  Report Type: Report from Study
  Country: US (occurrence: US)
  Receive Date: 20130812
  Receipt Date: 20130812
  Transmission Date: 20140515
  Serious: Yes (Other)
  Sender: FDA-Public Use
  Company Number: US-ROCHE-1260362

PATIENT
  Sex: Female

DRUGS (1)
  1. LUCENTIS [Suspect]
     Indication: CYSTOID MACULAR OEDEMA
     Dosage: 0.3 MG OD MONTHLY
     Route: 050

REACTIONS (3)
  - Retinal injury [Unknown]
  - Visual acuity reduced [Unknown]
  - Eye pain [Unknown]
